FAERS Safety Report 21971042 (Version 3)
Quarter: 2025Q3

REPORT INFORMATION
  Report Type: Report from Study
  Country: CA (occurrence: CA)
  Receive Date: 20230209
  Receipt Date: 20250718
  Transmission Date: 20251021
  Serious: Yes (Hospitalization, Other)
  Sender: CELLTRION
  Company Number: CA-CELLTRION INC.-2023CA002386

PATIENT

DRUGS (37)
  1. RITUXIMAB [Suspect]
     Active Substance: RITUXIMAB
     Indication: Rheumatoid arthritis
     Route: 042
  2. RITUXIMAB [Suspect]
     Active Substance: RITUXIMAB
     Indication: Connective tissue disorder
     Route: 065
  3. RITUXIMAB [Suspect]
     Active Substance: RITUXIMAB
     Route: 042
  4. RITUXIMAB [Suspect]
     Active Substance: RITUXIMAB
     Route: 042
  5. RITUXIMAB [Suspect]
     Active Substance: RITUXIMAB
     Route: 042
  6. RITUXIMAB [Suspect]
     Active Substance: RITUXIMAB
     Indication: Product used for unknown indication
     Route: 065
  7. RITUXIMAB [Suspect]
     Active Substance: RITUXIMAB
     Indication: Product used for unknown indication
     Route: 065
  8. ACETAMINOPHEN [Concomitant]
     Active Substance: ACETAMINOPHEN
     Route: 048
  9. ACETAMINOPHEN [Concomitant]
     Active Substance: ACETAMINOPHEN
  10. ALTACE [Concomitant]
     Active Substance: RAMIPRIL
  11. ATORVASTATIN [Concomitant]
     Active Substance: ATORVASTATIN
  12. ATORVASTATIN CALCIUM [Concomitant]
     Active Substance: ATORVASTATIN CALCIUM
  13. AZATHIOPRINE [Concomitant]
     Active Substance: AZATHIOPRINE
  14. CALCIUM [Concomitant]
     Active Substance: CALCIUM
  15. CIPROFLOXACIN HYDROCHLORIDE [Concomitant]
     Active Substance: CIPROFLOXACIN HYDROCHLORIDE
  16. CLARITHROMYCIN [Concomitant]
     Active Substance: CLARITHROMYCIN
  17. COQ10 COMPLEX [Concomitant]
  18. CYCLOBENZAPRINE HYDROCHLORIDE [Concomitant]
     Active Substance: CYCLOBENZAPRINE HYDROCHLORIDE
  19. DIPHENHYDRAMINE HYDROCHLORIDE [Concomitant]
     Active Substance: DIPHENHYDRAMINE HYDROCHLORIDE
     Route: 048
  20. DIPHENHYDRAMINE HYDROCHLORIDE [Concomitant]
     Active Substance: DIPHENHYDRAMINE HYDROCHLORIDE
  21. ESCITALOPRAM OXALATE [Concomitant]
     Active Substance: ESCITALOPRAM OXALATE
  22. HYDROCHLOROTHIAZIDE [Concomitant]
     Active Substance: HYDROCHLOROTHIAZIDE
  23. HYDROCHLOROTHIAZIDE [Concomitant]
     Active Substance: HYDROCHLOROTHIAZIDE
  24. HYDROCHLOROTHIAZIDE [Concomitant]
     Active Substance: HYDROCHLOROTHIAZIDE
  25. METHOTREXATE [Concomitant]
     Active Substance: METHOTREXATE
  26. METHOTREXATE [Concomitant]
     Active Substance: METHOTREXATE
     Route: 065
  27. METHOTREXATE [Concomitant]
     Active Substance: METHOTREXATE
  28. MVT 5873 [Concomitant]
  29. DOCONEXENT\ICOSAPENT [Concomitant]
     Active Substance: DOCONEXENT\ICOSAPENT
  30. PREDNISONE [Concomitant]
     Active Substance: PREDNISONE
     Route: 048
  31. PREDNISONE [Concomitant]
     Active Substance: PREDNISONE
  32. RAMIPRIL [Concomitant]
     Active Substance: RAMIPRIL
  33. SYNTHROID [Concomitant]
     Active Substance: LEVOTHYROXINE SODIUM
  34. UBIDECARENONE;VITAMIN E NOS [Concomitant]
  35. VENTOLIN [Concomitant]
     Active Substance: ALBUTEROL SULFATE
  36. VITAMIN C [Concomitant]
     Active Substance: ASCORBIC ACID
  37. CHOLECALCIFEROL [Concomitant]
     Active Substance: CHOLECALCIFEROL

REACTIONS (12)
  - C-reactive protein increased [Recovering/Resolving]
  - Gastrointestinal disorder [Recovering/Resolving]
  - Multiple sclerosis relapse [Recovering/Resolving]
  - Neuromyelitis optica spectrum disorder [Recovering/Resolving]
  - Rheumatoid arthritis [Recovering/Resolving]
  - Weight decreased [Recovering/Resolving]
  - Cystitis [Recovering/Resolving]
  - Sepsis [Recovering/Resolving]
  - Drug ineffective [Recovering/Resolving]
  - Off label use [Recovering/Resolving]
  - Intentional product use issue [Unknown]
  - Intentional product use issue [Unknown]
